FAERS Safety Report 13034898 (Version 1)
Quarter: 2016Q4

REPORT INFORMATION
  Report Type: Spontaneous
  Country: IL (occurrence: IL)
  Receive Date: 20161216
  Receipt Date: 20161216
  Transmission Date: 20170207
  Serious: Yes (Death, Other)
  Sender: FDA-Public Use
  Company Number: IL-AMGEN-ISRSP2016177882

PATIENT
  Age: 78 Year
  Sex: Male
  Weight: 57 kg

DRUGS (7)
  1. DEXACORT [Concomitant]
     Active Substance: DEXAMETHASONE SODIUM PHOSPHATE
     Dosage: 20 UNK, QWK
     Route: 048
     Dates: start: 20160328
  2. REVLIMID [Concomitant]
     Active Substance: LENALIDOMIDE
     Dosage: 25 UNK, QD
     Route: 048
     Dates: start: 20160328
  3. DIOVAN [Concomitant]
     Active Substance: VALSARTAN
     Dosage: UNK
     Route: 048
  4. KYPROLIS [Suspect]
     Active Substance: CARFILZOMIB
     Indication: AMYLOIDOSIS
  5. MONONIT [Concomitant]
     Dosage: UNK
     Route: 048
  6. ASPIRIN. [Concomitant]
     Active Substance: ASPIRIN
     Dosage: 100 UNK, QD
     Route: 048
  7. KYPROLIS [Suspect]
     Active Substance: CARFILZOMIB
     Indication: PLASMA CELL MYELOMA
     Dosage: 27 MG/M2, TWICE A WEEK FOR THREE CUMULATIVE WEEKS
     Route: 042
     Dates: start: 20160328

REACTIONS (1)
  - Death [Fatal]

NARRATIVE: CASE EVENT DATE: 20161204
